FAERS Safety Report 24228776 (Version 1)
Quarter: 2024Q3

REPORT INFORMATION
  Report Type: Spontaneous
  Country: CN (occurrence: CN)
  Receive Date: 20240820
  Receipt Date: 20240820
  Transmission Date: 20241016
  Serious: Yes (Life-Threatening)
  Sender: SANOFI AVENTIS
  Company Number: CN-SA-SAC20240819000658

PATIENT
  Age: 78 Year
  Sex: Female
  Weight: 55 kg

DRUGS (7)
  1. ELOXATIN [Suspect]
     Active Substance: OXALIPLATIN
     Indication: Rectal cancer
     Dosage: 100 MG, TOTAL (INFUSION FOR 2 HOURS)
     Route: 041
     Dates: start: 20240621, end: 20240621
  2. BEVACIZUMAB [Concomitant]
     Active Substance: BEVACIZUMAB
     Indication: Rectal cancer
     Dosage: 400 MG (400 MG D1)
     Dates: start: 20240621, end: 20240621
  3. FLUOROURACIL [Concomitant]
     Active Substance: FLUOROURACIL
     Indication: Rectal cancer
     Dosage: 0.5 G (FAST IV DRIP)
     Route: 041
     Dates: start: 20240621, end: 20240621
  4. FLUOROURACIL [Concomitant]
     Active Substance: FLUOROURACIL
     Dosage: 2 G (2 G CIV 46 H)
     Route: 041
     Dates: start: 20240621, end: 20240621
  5. LEUCOVORIN CALCIUM [Concomitant]
     Active Substance: LEUCOVORIN CALCIUM
     Indication: Rectal cancer
     Dosage: 500 MG, (500 MG D1)
     Dates: start: 20240621, end: 20240621
  6. SERPLULIMAB [Concomitant]
     Active Substance: SERPLULIMAB
     Indication: Rectal cancer
     Dosage: 100 MG (100 MG D1)
     Dates: start: 20240621, end: 20240621
  7. DEXTROSE [Concomitant]
     Active Substance: DEXTROSE\DEXTROSE MONOHYDRATE
     Indication: Vehicle solution use
     Dosage: 250 ML, TOTAL (INFUSION FOR 2 HOURS)
     Route: 041
     Dates: start: 20240621, end: 20240621

REACTIONS (10)
  - Temperature intolerance [Recovered/Resolved]
  - Pruritus [Recovered/Resolved]
  - Urinary incontinence [Recovered/Resolved]
  - Hyperhidrosis [Recovered/Resolved]
  - Chills [Recovered/Resolved]
  - Dizziness [Recovered/Resolved]
  - Asthenia [Recovered/Resolved]
  - Nausea [Recovered/Resolved]
  - Vomiting [Recovered/Resolved]
  - Abdominal pain [Recovered/Resolved]

NARRATIVE: CASE EVENT DATE: 20240621
